FAERS Safety Report 8501697 (Version 2)
Quarter: 2015Q2

REPORT INFORMATION
  Report Type: Spontaneous
  Country: US (occurrence: US)
  Receive Date: 20120410
  Receipt Date: 20150416
  Transmission Date: 20150821
  Serious: Yes (Congenital Anomaly)
  Sender: FDA-Public Use
  Company Number: US-ELI_LILLY_AND_COMPANY-US201204000225

PATIENT
  Sex: Female

DRUGS (6)
  1. IRON                               /00023516/ [Concomitant]
  2. INSULIN [Concomitant]
     Active Substance: INSULIN NOS
  3. INSULIN [Concomitant]
     Active Substance: INSULIN NOS
  4. IRON                               /00023516/ [Concomitant]
  5. PROZAC [Suspect]
     Active Substance: FLUOXETINE HYDROCHLORIDE
     Indication: PRODUCT USED FOR UNKNOWN INDICATION
     Route: 064
  6. PROZAC [Suspect]
     Active Substance: FLUOXETINE HYDROCHLORIDE
     Indication: PRODUCT USED FOR UNKNOWN INDICATION
     Route: 064

REACTIONS (7)
  - Atrial septal defect [Unknown]
  - Spina bifida [Unknown]
  - Hydrocephalus [Unknown]
  - Foetal exposure during pregnancy [Recovered/Resolved with Sequelae]
  - Urinary incontinence [Unknown]
  - Premature baby [Unknown]
  - Patent ductus arteriosus [Recovered/Resolved]
